FAERS Safety Report 6379596-9 (Version None)
Quarter: 2009Q3

REPORT INFORMATION
  Report Type: 
  Country: None (occurrence: None)
  Receive Date: 20090923
  Receipt Date: 20090908
  Transmission Date: 20100115
  Serious: Yes (Hospitalization)
  Sender: FDA-Public Use
  Company Number: 001682

PATIENT
  Age: 21 Year
  Sex: Male

DRUGS (3)
  1. LACOSAMIDE [Suspect]
     Indication: STATUS EPILEPTICUS
     Dosage: INTRAVENOUS
     Route: 042
  2. VANCOMYCIN [Concomitant]
  3. PHENOBARBITAL [Concomitant]

REACTIONS (1)
  - RASH [None]
